FAERS Safety Report 5199741-0 (Version None)
Quarter: 2007Q1

REPORT INFORMATION
  Report Type: 
  Country: None (occurrence: None)
  Receive Date: 20070105
  Receipt Date: 20051110
  Transmission Date: 20070707
  Serious: No
  Sender: FDA-Public Use
  Company Number: US-GLAXOSMITHKLINE-A0581566A

PATIENT
  Age: 68 Year
  Sex: Female

DRUGS (3)
  1. TAGAMET HB 200 [Suspect]
     Dates: start: 20051104
  2. LEUCOVORIN CALCIUM [Concomitant]
  3. CHEMOTHERAPY [Concomitant]

REACTIONS (1)
  - INSOMNIA [None]
